FAERS Safety Report 7850733-X (Version None)
Quarter: 2011Q4

REPORT INFORMATION
  Report Type: 
  Country: None (occurrence: None)
  Receive Date: 20111024
  Receipt Date: 20111010
  Transmission Date: 20120403
  Serious: Yes (Life-Threatening, Hospitalization)
  Sender: FDA-Public Use
  Company Number: 1074204

PATIENT
  Age: 2 Year
  Sex: Male

DRUGS (5)
  1. ISOFLURANE [Suspect]
     Indication: PREOPERATIVE CARE
     Dosage: RESPIRATORY
     Route: 055
  2. CEFAZOLIN [Concomitant]
  3. MIDAZOLAM HCL [Concomitant]
  4. FENTANYL CITRATE [Concomitant]
  5. ROCURONIUM BROMIDE [Suspect]
     Indication: PREOPERATIVE CARE

REACTIONS (14)
  - KOUNIS SYNDROME [None]
  - RENAL FAILURE [None]
  - COMPARTMENT SYNDROME [None]
  - CONGENITAL CORONARY ARTERY MALFORMATION [None]
  - HAEMODIALYSIS [None]
  - CONVULSION [None]
  - BRADYCARDIA [None]
  - DILATATION VENTRICULAR [None]
  - ATRIAL SEPTAL DEFECT [None]
  - PULMONARY OEDEMA [None]
  - CEREBRAL INFARCTION [None]
  - ACUTE RESPIRATORY DISTRESS SYNDROME [None]
  - HYPOTENSION [None]
  - ARTERIOSPASM CORONARY [None]
